FAERS Safety Report 15439030 (Version 1)
Quarter: 2018Q3

REPORT INFORMATION
  Report Type: Spontaneous
  Country: US (occurrence: US)
  Receive Date: 20180928
  Receipt Date: 20180928
  Transmission Date: 20181010
  Serious: No
  Sender: FDA-Public Use
  Company Number: US-PFIZER INC-2018384969

PATIENT
  Age: 64 Year
  Sex: Male
  Weight: 97.51 kg

DRUGS (2)
  1. CYTOMEL [Suspect]
     Active Substance: LIOTHYRONINE SODIUM
     Indication: AUTOIMMUNE THYROIDITIS
     Dosage: 12.5 UG, DAILY (2.5 TABLETS OF 5MCG TABLETS/ HALF A TABLET OF THE 25MCG TABLET)
     Route: 048
  2. CYTOMEL [Suspect]
     Active Substance: LIOTHYRONINE SODIUM
     Dosage: 25 UG, DAILY

REACTIONS (4)
  - Depression [Recovered/Resolved]
  - Asthenia [Recovering/Resolving]
  - Drug ineffective [Unknown]
  - Intentional product misuse [Unknown]
